FAERS Safety Report 8469315-4 (Version None)
Quarter: 2012Q2

REPORT INFORMATION
  Report Type: 
  Country: None (occurrence: None)
  Receive Date: 20120626
  Receipt Date: 20120614
  Transmission Date: 20120825
  Serious: No
  Sender: FDA-Public Use
  Company Number: US-ASTRAZENECA-2012SE40029

PATIENT
  Age: 40 Year
  Sex: Male
  Weight: 79.4 kg

DRUGS (4)
  1. SEROQUEL XR [Suspect]
     Indication: BIPOLAR DISORDER
     Dosage: 150 MG IN THE MORNING AND 300 MG AT NIGHT
     Route: 048
     Dates: start: 20110101, end: 20120401
  2. SEROQUEL XR [Suspect]
     Indication: DEPRESSION
     Dosage: 150 MG IN THE MORNING AND 300 MG AT NIGHT
     Route: 048
     Dates: start: 20110101, end: 20120401
  3. TRAZODONE HCL [Concomitant]
  4. SEROQUEL XR [Suspect]
     Indication: ANXIETY
     Dosage: 150 MG IN THE MORNING AND 300 MG AT NIGHT
     Route: 048
     Dates: start: 20110101, end: 20120401

REACTIONS (2)
  - INTENTIONAL DRUG MISUSE [None]
  - TREMOR [None]
